FAERS Safety Report 7588124-1 (Version None)
Quarter: 2011Q2

REPORT INFORMATION
  Report Type: 
  Country: None (occurrence: None)
  Receive Date: 20110627
  Receipt Date: 20110614
  Transmission Date: 20111010
  Serious: Yes (Hospitalization)
  Sender: FDA-Public Use
  Company Number: AUR-APL-2011-03245

PATIENT
  Age: 76 Year
  Sex: Female

DRUGS (4)
  1. OXYCODONE/ACETAMINOHEN (OXYCOCET) [Concomitant]
  2. GLYBURIDE [Concomitant]
  3. ZOLPIDEM [Concomitant]
  4. GABAPENTIN [Suspect]
     Indication: DIABETIC NEUROPATHY
     Dosage: 3600 MG (12  MG, 1 IN 8 HR)

REACTIONS (9)
  - DYSTONIA [None]
  - AGITATION [None]
  - CONFUSIONAL STATE [None]
  - AKATHISIA [None]
  - BLOOD GLUCOSE INCREASED [None]
  - EMOTIONAL DISTRESS [None]
  - PAIN IN EXTREMITY [None]
  - ANXIETY [None]
  - RESTLESSNESS [None]
